FAERS Safety Report 23546850 (Version 1)
Quarter: 2024Q1

REPORT INFORMATION
  Report Type: Spontaneous
  Country: CN (occurrence: CN)
  Receive Date: 20240221
  Receipt Date: 20240221
  Transmission Date: 20240409
  Serious: Yes (Hospitalization)
  Sender: FDA-Public Use
  Company Number: CN-Shanghai Hengrui Pharmaceutical Co., Ltd.-2153472

PATIENT
  Age: 62 Year
  Sex: Female
  Weight: 56 kg

DRUGS (4)
  1. SEVOFLURANE [Suspect]
     Active Substance: SEVOFLURANE
     Dates: start: 20240127, end: 20240127
  2. PROPOFOL [Concomitant]
     Active Substance: PROPOFOL
     Route: 042
     Dates: start: 20240127, end: 20240127
  3. SUFENTANIL CITRATE [Concomitant]
     Active Substance: SUFENTANIL CITRATE
     Route: 042
     Dates: start: 20240127, end: 20240127
  4. CISATRACURIUM BESYLATE [Concomitant]
     Active Substance: CISATRACURIUM BESYLATE
     Dates: start: 20240127, end: 20240127

REACTIONS (1)
  - Aphonia [Recovered/Resolved]

NARRATIVE: CASE EVENT DATE: 20240127
